FAERS Safety Report 17931833 (Version 3)
Quarter: 2020Q3

REPORT INFORMATION
  Report Type: Report from Study
  Country: NL (occurrence: NL)
  Receive Date: 20200623
  Receipt Date: 20200706
  Transmission Date: 20201103
  Serious: Yes (Life-Threatening, Hospitalization, Disabling, Other)
  Sender: FDA-Public Use
  Company Number: NL-GLAXOSMITHKLINE-NL2019240132

PATIENT
  Age: 63 Year
  Sex: Male

DRUGS (8)
  1. DICLOFENAC [Suspect]
     Active Substance: DICLOFENAC
     Indication: PAIN
     Dosage: 50 MG
     Route: 065
     Dates: start: 20191010, end: 20191025
  2. LOSARTAN. [Suspect]
     Active Substance: LOSARTAN
     Dosage: 50 MG
     Route: 065
     Dates: end: 20200504
  3. ABL001 [Suspect]
     Active Substance: ASCIMINIB
     Indication: PRODUCT USED FOR UNKNOWN INDICATION
     Dosage: 400 MG, QD
     Route: 065
     Dates: start: 20190926, end: 20200405
  4. ABL001 [Suspect]
     Active Substance: ASCIMINIB
     Dosage: 400 MG, QD
     Route: 065
     Dates: start: 20191025
  5. METFORMIN [Concomitant]
     Active Substance: METFORMIN HYDROCHLORIDE
     Indication: DIABETES MELLITUS
     Dosage: 1 (3000)MG
     Route: 065
     Dates: end: 20200504
  6. DICLOFENAC [Suspect]
     Active Substance: DICLOFENAC
     Indication: AMPUTATION
     Dosage: 3 (50), QD
     Route: 065
     Dates: end: 20200504
  7. DAPAGLIFLOZINE [Concomitant]
     Active Substance: DAPAGLIFLOZIN
     Indication: DIABETES MELLITUS
     Dosage: 10 OT, QD
     Route: 065
     Dates: end: 20200504
  8. LOSARTAN. [Suspect]
     Active Substance: LOSARTAN
     Indication: HYPERTENSION
     Dosage: 50 MG
     Route: 065
     Dates: start: 20190814, end: 20191025

REACTIONS (11)
  - Dehydration [Unknown]
  - Intestinal ischaemia [Recovered/Resolved]
  - Myocardial ischaemia [Recovered/Resolved]
  - Nausea [Unknown]
  - Metabolic acidosis [Recovered/Resolved]
  - Septic shock [Recovered/Resolved]
  - Pneumonia klebsiella [Recovered/Resolved]
  - Vascular injury [Unknown]
  - Acute kidney injury [Recovered/Resolved with Sequelae]
  - Vomiting [Unknown]
  - Renal failure [Recovered/Resolved]

NARRATIVE: CASE EVENT DATE: 20191025
